FAERS Safety Report 5681092-9 (Version None)
Quarter: 2008Q1

REPORT INFORMATION
  Report Type: 
  Country: None (occurrence: None)
  Receive Date: 20080325
  Receipt Date: 20080310
  Transmission Date: 20080703
  Serious: Yes (Death, Other)
  Sender: FDA-Public Use
  Company Number: 100#08#2008-01510

PATIENT
  Age: 55 Year

DRUGS (1)
  1. METHYLPREDNISOLONE [Suspect]
     Indication: SYSTEMIC LUPUS ERYTHEMATOSUS

REACTIONS (10)
  - ABSCESS [None]
  - DRUG INEFFECTIVE [None]
  - ERYTHEMA [None]
  - IMMUNODEFICIENCY [None]
  - MULTI-ORGAN FAILURE [None]
  - NO THERAPEUTIC RESPONSE [None]
  - SEPSIS [None]
  - SKIN NECROSIS [None]
  - TUBERCULOSIS [None]
  - WEIGHT DECREASED [None]
